FAERS Safety Report 4921580-3 (Version None)
Quarter: 2006Q1

REPORT INFORMATION
  Report Type: 
  Country: None (occurrence: None)
  Receive Date: 20060224
  Receipt Date: 20060213
  Transmission Date: 20060701
  Serious: Yes (Other)
  Sender: FDA-Public Use
  Company Number: 2006AC00311

PATIENT
  Age: 74 Year
  Sex: Female

DRUGS (10)
  1. LIGNOCAINE [Suspect]
     Indication: LOCAL ANAESTHESIA
     Dosage: INJECTED INTO SUB-TENON'S SPACE
     Route: 031
  2. BUPIVACAINE [Suspect]
     Indication: LOCAL ANAESTHESIA
     Dosage: INJECTED INTO SUB-TENON'S SPACE
     Route: 031
  3. HYALURONIDASE [Suspect]
     Dosage: INJECTED INTO SUB-TENON'S SPACE
     Route: 031
  4. PROXYMETACAINE [Suspect]
     Indication: LOCAL ANAESTHESIA
     Route: 031
  5. POVIDONE IODINE [Suspect]
     Indication: PROPHYLAXIS
     Dosage: INSTILLED INTO CONJUNCTIVAL SAC
  6. POVIDONE IODINE [Suspect]
     Dosage: USED TO CLEAN SKIN BEFORE SURGERY.
     Route: 061
  7. CEFUROXIME [Suspect]
     Route: 057
  8. CEFUROXIME [Suspect]
     Dosage: INTRACAMERALLY
     Route: 031
  9. CHLORAMPHENICOL [Suspect]
  10. PREDNISOLONE [Suspect]

REACTIONS (8)
  - CONJUNCTIVAL OEDEMA [None]
  - DRUG HYPERSENSITIVITY [None]
  - EXOPHTHALMOS [None]
  - EYE INFLAMMATION [None]
  - EYE PAIN [None]
  - INTRAOCULAR PRESSURE INCREASED [None]
  - INTRAOCULAR PRESSURE TEST [None]
  - SOFT TISSUE INJURY [None]
